FAERS Safety Report 5277639-7 (Version None)
Quarter: 2007Q1

REPORT INFORMATION
  Report Type: 
  Country: None (occurrence: None)
  Receive Date: 20061213
  Receipt Date: 20050314
  Transmission Date: 20070707
  Serious: Yes (Hospitalization)
  Sender: FDA-Public Use
  Company Number: 2005UW04001

PATIENT
  Age: 51 Year
  Sex: Female

DRUGS (4)
  1. SEROQUEL [Suspect]
     Dosage: 100 MG QD PO
     Route: 048
  2. NORVASC [Concomitant]
  3. COGENTIN [Concomitant]
  4. RTFPI OR COMPARATOR [Concomitant]

REACTIONS (3)
  - COMA [None]
  - MENTAL STATUS CHANGES [None]
  - TREMOR [None]
